FAERS Safety Report 8794207 (Version 1)
Quarter: 2012Q4

REPORT INFORMATION
  Report Type: 
  Country: DE (occurrence: DE)
  Receive Date: 20120917
  Receipt Date: 20120917
  Transmission Date: 20130627
  Serious: Yes (Hospitalization)
  Sender: FDA-Public Use
  Company Number: DE-ELI_LILLY_AND_COMPANY-DE201209001478

PATIENT
  Sex: Female

DRUGS (4)
  1. FORSTEO [Suspect]
     Indication: OSTEOPOROSIS
     Dosage: UNK, qd
     Route: 058
     Dates: start: 20120618
  2. OESTROFEMINAL [Concomitant]
  3. CALCIMAGON D3 [Concomitant]
  4. BEPANTHEN                          /00178901/ [Concomitant]

REACTIONS (4)
  - Surgery [Recovered/Resolved]
  - Muscular weakness [Recovered/Resolved]
  - Anaesthetic complication [Unknown]
  - Initial insomnia [Not Recovered/Not Resolved]
